FAERS Safety Report 5951497-7 (Version None)
Quarter: 2008Q4

REPORT INFORMATION
  Report Type: 
  Country: None (occurrence: None)
  Receive Date: 20081113
  Receipt Date: 20081103
  Transmission Date: 20090506
  Serious: Yes (Other)
  Sender: FDA-Public Use
  Company Number: US-JNJCH-2008053997

PATIENT
  Age: 2 Year
  Sex: Male

DRUGS (1)
  1. DEXTROMETHORPHAN [Suspect]
     Indication: COUGH
     Dosage: TEXT:UNSPECIFIED
     Route: 048

REACTIONS (3)
  - DYSPHEMIA [None]
  - GAIT DISTURBANCE [None]
  - WRONG DRUG ADMINISTERED [None]
